FAERS Safety Report 15410938 (Version 1)
Quarter: 2018Q3

REPORT INFORMATION
  Report Type: Spontaneous
  Country: US (occurrence: US)
  Receive Date: 20180919
  Receipt Date: 20180919
  Transmission Date: 20181010
  Serious: Yes (Life-Threatening)
  Sender: FDA-Public Use
  Company Number: None

PATIENT
  Age: 38 Year
  Sex: Female
  Weight: 90.45 kg

DRUGS (8)
  1. LEVEMIR [Concomitant]
     Active Substance: INSULIN DETEMIR
  2. HALOPERIDOL. [Suspect]
     Active Substance: HALOPERIDOL
     Dates: start: 20180405, end: 20180405
  3. VOLTAREN 1% TOPICAL [Concomitant]
  4. NOVOLOG [Concomitant]
     Active Substance: INSULIN ASPART
  5. GABAPENTIN 100 MG [Concomitant]
     Active Substance: GABAPENTIN
  6. GLIPIZIDE 10 MG [Concomitant]
     Active Substance: GLIPIZIDE
  7. LISINOPRIL 10 MG [Concomitant]
     Active Substance: LISINOPRIL
  8. METFORMIN [Concomitant]
     Active Substance: METFORMIN HYDROCHLORIDE

REACTIONS (2)
  - Dyspnoea [None]
  - Swollen tongue [None]

NARRATIVE: CASE EVENT DATE: 20180430
